FAERS Safety Report 6932770-2 (Version None)
Quarter: 2010Q3

REPORT INFORMATION
  Report Type: 
  Country: None (occurrence: None)
  Receive Date: 20100819
  Receipt Date: 20100809
  Transmission Date: 20110219
  Serious: Yes (Other)
  Sender: FDA-Public Use
  Company Number: US-ABBOTT-10P-163-0663089-00

PATIENT
  Age: 64 Year
  Sex: Female

DRUGS (5)
  1. HUMIRA [Suspect]
     Indication: RHEUMATOID ARTHRITIS
  2. ATENOLOL [Concomitant]
     Indication: HYPERTENSION
  3. LASIX [Concomitant]
     Indication: HYPERTENSION
  4. METHOTREXATE [Concomitant]
     Indication: RHEUMATOID ARTHRITIS
  5. ASPIRIN [Concomitant]
     Indication: PROPHYLAXIS

REACTIONS (6)
  - ARTHRALGIA [None]
  - CHEST PAIN [None]
  - DYSPNOEA [None]
  - LYMPHADENOPATHY [None]
  - MUSCULOSKELETAL STIFFNESS [None]
  - PULMONARY MASS [None]
